FAERS Safety Report 7417281-2 (Version None)
Quarter: 2011Q2

REPORT INFORMATION
  Report Type: 
  Country: None (occurrence: None)
  Receive Date: 20110415
  Receipt Date: 20110408
  Transmission Date: 20111010
  Serious: Yes (Hospitalization)
  Sender: FDA-Public Use
  Company Number: FR-BRISTOL-MYERS SQUIBB COMPANY-15663545

PATIENT
  Age: 46 Year
  Sex: Male

DRUGS (1)
  1. HYDREA [Suspect]
     Indication: ESSENTIAL THROMBOCYTHAEMIA
     Route: 048
     Dates: start: 20101102, end: 20101201

REACTIONS (2)
  - INFLUENZA LIKE ILLNESS [None]
  - HYPERTHERMIA [None]
